FAERS Safety Report 8027759-9 (Version None)
Quarter: 2012Q1

REPORT INFORMATION
  Report Type: 
  Country: None (occurrence: None)
  Receive Date: 20120106
  Receipt Date: 20120106
  Transmission Date: 20120608
  Serious: Yes (Hospitalization, Other)
  Sender: FDA-Public Use
  Company Number: None

PATIENT
  Age: 52 Year
  Sex: Male
  Weight: 98.883 kg

DRUGS (1)
  1. EFUDEX [Suspect]
     Indication: PRECANCEROUS CELLS PRESENT
     Dosage: 1 TIME A DAY AT BED TIME
     Route: 061
     Dates: start: 20050121, end: 20050220

REACTIONS (4)
  - SINUS DISORDER [None]
  - NAUSEA [None]
  - HYPERSENSITIVITY [None]
  - IMMUNE SYSTEM DISORDER [None]
